FAERS Safety Report 6210231-6 (Version None)
Quarter: 2009Q2

REPORT INFORMATION
  Report Type: 
  Country: None (occurrence: None)
  Receive Date: 20090601
  Receipt Date: 20090528
  Transmission Date: 20091009
  Serious: No
  Sender: FDA-Public Use
  Company Number: US-B.I. PHARMACEUTICALS,INC./RIDGEFIELD-2009-BP-04698BP

PATIENT
  Age: 65 Year
  Sex: Female
  Weight: 88.9 kg

DRUGS (7)
  1. CATAPRES-TTS-1 [Suspect]
     Indication: HYPERTENSION
     Dosage: .1MG
     Route: 062
     Dates: start: 20080801, end: 20090422
  2. PREMARIN [Concomitant]
     Dosage: 1.25MG
  3. HYDROCHLOROTHIAZIDE [Concomitant]
     Dosage: 25MG
  4. PRILOSEC [Concomitant]
     Dosage: 20MG
  5. KLOR-CON [Concomitant]
  6. METOPROLOL SUCCINATE [Concomitant]
     Dosage: 50MG
  7. FLONASE [Concomitant]

REACTIONS (2)
  - APPLICATION SITE RASH [None]
  - RASH ERYTHEMATOUS [None]
